FAERS Safety Report 6371589-0 (Version None)
Quarter: 2009Q3

REPORT INFORMATION
  Report Type: 
  Country: None (occurrence: None)
  Receive Date: 20090923
  Receipt Date: 20071004
  Transmission Date: 20100115
  Serious: Yes (Other)
  Sender: FDA-Public Use
  Company Number: US-ASTRAZENECA-2007UW16445

PATIENT
  Sex: Female
  Weight: 75.7 kg

DRUGS (9)
  1. SEROQUEL [Suspect]
     Indication: DEPRESSION
     Route: 048
     Dates: start: 20000101
  2. SEROQUEL [Suspect]
     Indication: ANXIETY
     Route: 048
     Dates: start: 20000101
  3. SEROQUEL [Suspect]
     Dosage: 100 MG TABLET TAKE 2 TABLET(S) PO QHS, 100 MG DISPENSED
     Route: 048
     Dates: start: 20030623
  4. SEROQUEL [Suspect]
     Dosage: 100 MG TABLET TAKE 2 TABLET(S) PO QHS, 100 MG DISPENSED
     Route: 048
     Dates: start: 20030623
  5. AMBIEN [Concomitant]
     Dates: start: 19970929
  6. IMITREX [Concomitant]
     Indication: HEADACHE
     Dosage: 50 MG TABLET TAKE 2 TABLET(S) PO BID PRN
     Dates: start: 20020522
  7. PLAQUENIL [Concomitant]
     Dates: start: 20040504
  8. ZOMIG [Concomitant]
     Dosage: 5 MG 1 TABLET(S)PO X 1 AS DIRECTED
     Dates: start: 20020522
  9. NAPROXEN [Concomitant]
     Dosage: 500 MG TABLET TAKE 1 TABLET (S) PO BID PRN
     Dates: start: 20040504

REACTIONS (1)
  - PANCREATITIS [None]
